FAERS Safety Report 11568617 (Version 1)
Quarter: 2015Q3

REPORT INFORMATION
  Report Type: Spontaneous
  Country: US (occurrence: None)
  Receive Date: 20150928
  Receipt Date: 20150928
  Transmission Date: 20151125
  Serious: Yes (Other)
  Sender: FDA-Public Use
  Company Number: None

PATIENT
  Age: 3 Year
  Sex: Female
  Weight: 15.1 kg

DRUGS (1)
  1. VINCRISTINE 1 MG OR 2 MG HOSPIRA [Suspect]
     Active Substance: VINCRISTINE
     Indication: LEUKAEMIA
     Route: 042

REACTIONS (4)
  - Depressed level of consciousness [None]
  - Lethargy [None]
  - Cough [None]
  - Infusion related reaction [None]

NARRATIVE: CASE EVENT DATE: 20150921
